FAERS Safety Report 4722182-4 (Version None)
Quarter: 2005Q3

REPORT INFORMATION
  Report Type: 
  Country: None (occurrence: None)
  Receive Date: 20050722
  Receipt Date: 20040826
  Transmission Date: 20060218
  Serious: Yes (Other)
  Sender: FDA-Public Use
  Company Number: US-GLAXOSMITHKLINE-A0523655A

PATIENT
  Age: 67 Year
  Sex: Female

DRUGS (7)
  1. AVANDIA [Suspect]
     Dosage: 8MG PER DAY
     Route: 048
     Dates: start: 20020101
  2. TOPROL-XL [Concomitant]
  3. FUROSAMIDE [Concomitant]
  4. CATAPRES [Concomitant]
  5. ATACAND [Concomitant]
  6. LOTREL [Concomitant]
  7. GLUCOVANCE [Concomitant]

REACTIONS (1)
  - ANAEMIA [None]
